FAERS Safety Report 4578643-4 (Version None)
Quarter: 2005Q1

REPORT INFORMATION
  Report Type: 
  Country: None (occurrence: None)
  Receive Date: 20050207
  Receipt Date: 20050207
  Transmission Date: 20050727
  Serious: Yes (Life-Threatening)
  Sender: FDA-Public Use
  Company Number: None

PATIENT
  Age: 64 Year
  Sex: Female

DRUGS (1)
  1. RISPERDAL [Suspect]
     Indication: MANIA
     Dosage: 500 MCG   DAILY   ORAL
     Route: 048
     Dates: start: 20050106, end: 20050113

REACTIONS (2)
  - FACIAL PALSY [None]
  - TRANSIENT ISCHAEMIC ATTACK [None]
